FAERS Safety Report 23861936 (Version 1)
Quarter: 2024Q2

REPORT INFORMATION
  Report Type: Report from Study
  Country: US (occurrence: US)
  Receive Date: 20240516
  Receipt Date: 20240516
  Transmission Date: 20240716
  Serious: Yes (Other)
  Sender: FDA-Public Use
  Company Number: US-E2BLSMVVAL-CLI/USA/24/0007019

PATIENT
  Age: 30 Year
  Sex: Female
  Weight: 90.72 kg

DRUGS (3)
  1. LURASIDONE HYDROCHLORIDE [Suspect]
     Active Substance: LURASIDONE HYDROCHLORIDE
     Indication: Product used for unknown indication
     Route: 065
     Dates: start: 20230208
  2. BUPROPION [Concomitant]
     Active Substance: BUPROPION
     Indication: Product used for unknown indication
     Route: 065
     Dates: start: 20220723, end: 20220820
  3. LUMATEPERONE [Concomitant]
     Active Substance: LUMATEPERONE
     Indication: Product used for unknown indication
     Route: 065
     Dates: start: 20220723, end: 20220820

REACTIONS (3)
  - Exposure during pregnancy [Unknown]
  - Gestational hypertension [Unknown]
  - Pre-eclampsia [Unknown]
